FAERS Safety Report 26037113 (Version 1)
Quarter: 2025Q4

REPORT INFORMATION
  Report Type: Spontaneous
  Country: US (occurrence: US)
  Receive Date: 20251112
  Receipt Date: 20251112
  Transmission Date: 20260118
  Serious: No
  Sender: BOEHRINGER INGELHEIM
  Company Number: US-BoehringerIngelheim-2025-BI-107234

PATIENT
  Age: 68 Year

DRUGS (3)
  1. JARDIANCE [Suspect]
     Active Substance: EMPAGLIFLOZIN
     Indication: Blood glucose increased
  2. MOUNJARO [Suspect]
     Active Substance: TIRZEPATIDE
     Indication: Blood glucose increased
     Dosage: AUTOINJECTOR
  3. MOUNJARO [Suspect]
     Active Substance: TIRZEPATIDE
     Dosage: AUTOINJECTOR

REACTIONS (3)
  - Decreased appetite [Unknown]
  - Visual impairment [Unknown]
  - Blood glucose increased [Unknown]
